FAERS Safety Report 11672418 (Version 3)
Quarter: 2016Q1

REPORT INFORMATION
  Report Type: Report from Study
  Country: DE (occurrence: DE)
  Receive Date: 20151028
  Receipt Date: 20160222
  Transmission Date: 20160525
  Serious: Yes (Hospitalization)
  Sender: FDA-Public Use
  Company Number: PHHO2013DE010651

PATIENT
  Age: 56 Year
  Sex: Female
  Weight: 45.9 kg

DRUGS (17)
  1. DECORTIN [Concomitant]
     Active Substance: PREDNISONE
     Dosage: 10 MG, QD
     Route: 048
     Dates: end: 20131023
  2. DECORTIN [Concomitant]
     Active Substance: PREDNISONE
     Dosage: 7.5 MG, BID
     Route: 048
     Dates: start: 20131116
  3. BICANORM [Concomitant]
     Active Substance: SODIUM BICARBONATE
     Dosage: UNK
     Route: 065
     Dates: start: 20131029
  4. TACROLIMUS. [Suspect]
     Active Substance: TACROLIMUS
     Dosage: 4 MG, BID
     Route: 048
     Dates: start: 20131026
  5. DECORTIN [Concomitant]
     Active Substance: PREDNISONE
     Dosage: 250 MG, BID
     Route: 048
     Dates: start: 20130813
  6. PANTOZOL [Concomitant]
     Active Substance: PANTOPRAZOLE SODIUM
     Indication: PROPHYLAXIS
     Dosage: 40 MG, QD
     Route: 065
     Dates: start: 20130814
  7. MYFORTIC [Suspect]
     Active Substance: MYCOPHENOLATE SODIUM
     Indication: RENAL TRANSPLANT
     Dosage: 360 MG, BID
     Route: 048
     Dates: start: 20130814, end: 20131023
  8. TACROLIMUS. [Suspect]
     Active Substance: TACROLIMUS
     Indication: RENAL TRANSPLANT
     Dosage: 6 MG, BID
     Route: 048
     Dates: start: 20130730, end: 20131023
  9. KALINOR [Concomitant]
     Active Substance: POTASSIUM CITRATE
     Indication: HYPERKALAEMIA
     Dosage: 1-2/DAY
     Route: 065
     Dates: start: 20130804
  10. REGULTON [Concomitant]
     Indication: HYPOTENSION
     Dosage: 10 MG, BID
     Route: 065
     Dates: start: 20130730, end: 20131024
  11. CELLCEPT [Concomitant]
     Active Substance: MYCOPHENOLATE MOFETIL\MYCOPHENOLATE MOFETIL HYDROCHLORIDE
     Indication: RENAL TRANSPLANT
     Dosage: 500 MG, BID
     Route: 048
     Dates: start: 20130730, end: 20130813
  12. DECORTIN [Concomitant]
     Active Substance: PREDNISONE
     Indication: RENAL TRANSPLANT
     Dosage: 500 MG, QD
     Route: 048
     Dates: start: 20130730, end: 20130813
  13. PARACETAMOL [Concomitant]
     Active Substance: ACETAMINOPHEN
     Indication: PRODUCT USED FOR UNKNOWN INDICATION
     Dosage: 1 G, TID
     Route: 065
     Dates: end: 20130813
  14. BICANORM [Concomitant]
     Active Substance: SODIUM BICARBONATE
     Dosage: 2 G, TID
     Route: 065
     Dates: end: 20131024
  15. AMPHO MORONAL [Concomitant]
     Active Substance: AMPHOTERICIN B
     Indication: PRODUCT USED FOR UNKNOWN INDICATION
     Dosage: WITH MEALS
     Route: 065
  16. KEPINOL [Concomitant]
     Active Substance: SULFAMETHOXAZOLE\TRIMETHOPRIM
     Indication: INFECTION PROPHYLAXIS
     Dosage: 1 PILL, MON, WED, FRI
     Route: 065
     Dates: start: 20130731, end: 20131024
  17. BICANORM [Concomitant]
     Active Substance: SODIUM BICARBONATE
     Indication: METABOLIC ACIDOSIS
     Dosage: 1 G, TID
     Route: 065
     Dates: start: 201308, end: 20130813

REACTIONS (3)
  - Acute kidney injury [Recovered/Resolved with Sequelae]
  - Haematoma [Recovered/Resolved]
  - Acute kidney injury [Recovered/Resolved]

NARRATIVE: CASE EVENT DATE: 20130811
